FAERS Safety Report 25765019 (Version 3)
Quarter: 2025Q4

REPORT INFORMATION
  Report Type: Spontaneous
  Country: KR (occurrence: KR)
  Receive Date: 20250905
  Receipt Date: 20251001
  Transmission Date: 20260117
  Serious: Yes (Other)
  Sender: SANOFI AVENTIS
  Company Number: KR-SANOFI-02635388

PATIENT
  Sex: Male

DRUGS (2)
  1. APIDRA [Suspect]
     Active Substance: INSULIN GLULISINE
     Indication: Diabetes mellitus
     Dosage: 25 U, TID
     Route: 065
  2. LANTUS SOLOSTAR [Suspect]
     Active Substance: INSULIN GLARGINE
     Indication: Diabetes mellitus
     Dosage: UNK [FOR OVER 25 YEARS]
     Route: 065

REACTIONS (10)
  - Neoplasm malignant [Unknown]
  - Cataract [Unknown]
  - Hip surgery [Unknown]
  - Diabetes mellitus inadequate control [Unknown]
  - Hypertension [Unknown]
  - Vision blurred [Unknown]
  - Herpes zoster [Unknown]
  - Rash [Unknown]
  - Injection site pain [Unknown]
  - Product storage error [Unknown]
